FAERS Safety Report 9828447 (Version 1)
Quarter: 2014Q1

REPORT INFORMATION
  Report Type: Spontaneous
  Country: FR (occurrence: FR)
  Receive Date: 20140117
  Receipt Date: 20140117
  Transmission Date: 20141002
  Serious: Yes (Hospitalization)
  Sender: FDA-Public Use
  Company Number: FR-ELI_LILLY_AND_COMPANY-FR201401001542

PATIENT
  Age: 71 Year
  Sex: Male

DRUGS (2)
  1. ALIMTA [Suspect]
     Indication: PRODUCT USED FOR UNKNOWN INDICATION
     Route: 065
  2. CRIZOTINIB [Concomitant]

REACTIONS (7)
  - Bronchospasm [Unknown]
  - Neuropathy peripheral [Unknown]
  - Vertigo [Unknown]
  - Bronchitis [Unknown]
  - Dementia [Recovered/Resolved]
  - Aggression [Recovered/Resolved]
  - Asthenia [Unknown]
